FAERS Safety Report 16681692 (Version 1)
Quarter: 2019Q3

REPORT INFORMATION
  Report Type: Report from Study
  Country: JP (occurrence: JP)
  Receive Date: 20190808
  Receipt Date: 20190808
  Transmission Date: 20191004
  Serious: Yes (Hospitalization)
  Sender: FDA-Public Use
  Company Number: JP-ELI_LILLY_AND_COMPANY-JP201908000309

PATIENT
  Age: 72 Year
  Sex: Male
  Weight: 64 kg

DRUGS (14)
  1. ARTIST [Concomitant]
     Active Substance: CARVEDILOL
     Dosage: UNK
     Route: 048
  2. JANUVIA [Concomitant]
     Active Substance: SITAGLIPTIN PHOSPHATE
     Dosage: UNK
     Route: 048
  3. BAYASPIRIN [Concomitant]
     Active Substance: ASPIRIN
     Dosage: 100MG/DAY
     Route: 048
  4. SIGMART [Concomitant]
     Active Substance: NICORANDIL
     Dosage: UNK
     Route: 048
  5. HEPARIN [Concomitant]
     Active Substance: HEPARIN SODIUM
     Dosage: 6000 INTERNATIONAL UNIT, UNK
     Route: 065
  6. ATORVASTATIN [Concomitant]
     Active Substance: ATORVASTATIN
     Dosage: UNK
     Route: 048
  7. CLOPIDOGREL [Concomitant]
     Active Substance: CLOPIDOGREL BISULFATE
     Dosage: UNK
     Route: 048
     Dates: start: 20190201
  8. ITOROL [Concomitant]
     Active Substance: ISOSORBIDE MONONITRATE
     Dosage: UNK
     Route: 048
  9. PRASUGREL HYDROCHLORIDE [Suspect]
     Active Substance: PRASUGREL HYDROCHLORIDE
     Indication: ANGINA PECTORIS
     Dosage: 3.75 MG, DAILY
     Route: 065
     Dates: start: 20180810, end: 20180819
  10. TICLOPIDINE HYDROCHLORIDE. [Concomitant]
     Active Substance: TICLOPIDINE HYDROCHLORIDE
     Indication: ANGINA PECTORIS
     Dosage: 200 MG, DAILY
     Route: 048
     Dates: end: 20190201
  11. HEPARIN [Concomitant]
     Active Substance: HEPARIN SODIUM
     Dosage: 8000 INTERNATIONAL UNIT, UNK
     Route: 065
  12. HEPARIN [Concomitant]
     Active Substance: HEPARIN SODIUM
     Dosage: 8000 INTERNATIONAL UNIT, UNK
     Route: 065
  13. AMARYL [Concomitant]
     Active Substance: GLIMEPIRIDE
     Dosage: UNK
     Route: 048
  14. AMLODIPINE [AMLODIPINE BESILATE] [Concomitant]
     Active Substance: AMLODIPINE BESYLATE
     Dosage: UNK
     Route: 048
     Dates: start: 20190202

REACTIONS (3)
  - Vascular stent stenosis [Recovering/Resolving]
  - Thrombotic cerebral infarction [Recovering/Resolving]
  - Vascular stent stenosis [Recovering/Resolving]

NARRATIVE: CASE EVENT DATE: 201808
